FAERS Safety Report 18295507 (Version 1)
Quarter: 2020Q3

REPORT INFORMATION
  Report Type: Spontaneous
  Country: US (occurrence: US)
  Receive Date: 20200922
  Receipt Date: 20200922
  Transmission Date: 20201103
  Serious: Yes (Other)
  Sender: FDA-Public Use
  Company Number: US-ROCHE-2209552

PATIENT
  Age: 67 Year
  Sex: Female
  Weight: 106.69 kg

DRUGS (14)
  1. ESBRIET [Suspect]
     Active Substance: PIRFENIDONE
     Indication: IDIOPATHIC PULMONARY FIBROSIS
     Route: 048
     Dates: start: 201809
  2. MONTELUKAST [Concomitant]
     Active Substance: MONTELUKAST SODIUM
     Indication: HYPERSENSITIVITY
  3. POTASSIUM CHLORIDE. [Concomitant]
     Active Substance: POTASSIUM CHLORIDE
  4. LASIX [Concomitant]
     Active Substance: FUROSEMIDE
     Indication: OEDEMA
  5. ALLOPURINOL. [Concomitant]
     Active Substance: ALLOPURINOL
     Indication: BLOOD URIC ACID INCREASED
  6. ESBRIET [Suspect]
     Active Substance: PIRFENIDONE
     Route: 048
     Dates: start: 20181026
  7. OXYGEN. [Concomitant]
     Active Substance: OXYGEN
     Route: 055
  8. OXYGEN. [Concomitant]
     Active Substance: OXYGEN
     Route: 055
  9. ASPIRIN. [Concomitant]
     Active Substance: ASPIRIN
  10. CELLCEPT [Suspect]
     Active Substance: MYCOPHENOLATE MOFETIL\MYCOPHENOLATE MOFETIL HYDROCHLORIDE
     Indication: IDIOPATHIC INTERSTITIAL PNEUMONIA
     Route: 065
  11. BENZONATATE. [Concomitant]
     Active Substance: BENZONATATE
     Indication: COUGH
  12. CALCITRIOL. [Concomitant]
     Active Substance: CALCITRIOL
  13. LEVOTHYROXINE. [Concomitant]
     Active Substance: LEVOTHYROXINE
  14. LOPRESSOR [Concomitant]
     Active Substance: METOPROLOL TARTRATE

REACTIONS (17)
  - Nausea [Recovering/Resolving]
  - Pneumonitis [Not Recovered/Not Resolved]
  - Hypoxia [Recovered/Resolved with Sequelae]
  - Constipation [Recovering/Resolving]
  - Off label use [Unknown]
  - Anaemia [Unknown]
  - Productive cough [Not Recovered/Not Resolved]
  - Intentional product use issue [Unknown]
  - Weight increased [Recovering/Resolving]
  - Vomiting [Recovering/Resolving]
  - Diarrhoea [Unknown]
  - Vomiting [Unknown]
  - Angina pectoris [Recovered/Resolved with Sequelae]
  - Nephropathy [Not Recovered/Not Resolved]
  - Carcinoembryonic antigen increased [Unknown]
  - Nausea [Unknown]
  - Abdominal pain upper [Unknown]

NARRATIVE: CASE EVENT DATE: 201812
